FAERS Safety Report 19694553 (Version 8)
Quarter: 2023Q4

REPORT INFORMATION
  Report Type: Spontaneous
  Country: US (occurrence: US)
  Receive Date: 20210812
  Receipt Date: 20231114
  Transmission Date: 20240109
  Serious: Yes (Hospitalization, Other)
  Sender: FDA-Public Use
  Company Number: US-PFIZER INC-2020345035

PATIENT
  Age: 76 Year
  Sex: Male
  Weight: 79.38 kg

DRUGS (7)
  1. VYNDAMAX [Suspect]
     Active Substance: TAFAMIDIS
     Indication: Cardiac amyloidosis
     Dosage: 61 MG, 1X/DAY (ONE CAPSULE BY MOUTH DAILY)
     Route: 048
  2. VYNDAMAX [Suspect]
     Active Substance: TAFAMIDIS
     Dosage: UNK
     Route: 048
  3. VYNDAMAX [Suspect]
     Active Substance: TAFAMIDIS
     Dosage: UNK
  4. ELIQUIS [Concomitant]
     Active Substance: APIXABAN
     Indication: Anticoagulant therapy
     Dosage: 5 MG, 2X/DAY (TWICE DAILY)
  5. METOPROLOL [Concomitant]
     Active Substance: METOPROLOL
     Indication: Heart rate decreased
     Dosage: 0.5 DF, 1X/DAY (1/2 PILL ONCE DAILY)
  6. CARVEDILOL [Concomitant]
     Active Substance: CARVEDILOL
     Dosage: 3.125 MG, 2X/DAY
  7. ASPIRIN [Concomitant]
     Active Substance: ASPIRIN
     Dosage: UNK, ALTERNATE DAY

REACTIONS (14)
  - Carpal tunnel syndrome [Not Recovered/Not Resolved]
  - Nail operation [Unknown]
  - Pulmonary oedema [Unknown]
  - Back disorder [Unknown]
  - Dyspnoea [Unknown]
  - Foot fracture [Unknown]
  - Haemorrhage [Recovered/Resolved]
  - Gout [Unknown]
  - Hypoaesthesia [Not Recovered/Not Resolved]
  - Body height decreased [Unknown]
  - Blood cholesterol abnormal [Unknown]
  - Brain fog [Unknown]
  - Heart rate irregular [Unknown]
  - Wrong technique in product usage process [Unknown]

NARRATIVE: CASE EVENT DATE: 20210101
